FAERS Safety Report 25545463 (Version 2)
Quarter: 2025Q3

REPORT INFORMATION
  Report Type: Report from Study
  Country: EU (occurrence: EU)
  Receive Date: 20250711
  Receipt Date: 20250822
  Transmission Date: 20251021
  Serious: Yes (Congenital Anomaly, Other)
  Sender: GILEAD
  Company Number: EU-SA-2021SA188054

PATIENT

DRUGS (3)
  1. TENOFOVIR DISOPROXIL FUMARATE [Suspect]
     Active Substance: TENOFOVIR DISOPROXIL FUMARATE
     Indication: HIV infection
     Route: 065
  2. DORAVIRINE [Suspect]
     Active Substance: DORAVIRINE
     Indication: HIV infection
     Route: 065
  3. LAMIVUDINE [Suspect]
     Active Substance: LAMIVUDINE
     Indication: HIV infection
     Route: 065

REACTIONS (2)
  - Long QT syndrome congenital [Recovered/Resolved]
  - Condition aggravated [Recovered/Resolved]
